FAERS Safety Report 8817121 (Version 1)
Quarter: 2012Q4

REPORT INFORMATION
  Report Type: Spontaneous
  Country: US (occurrence: None)
  Receive Date: 20121003
  Receipt Date: 20121003
  Transmission Date: 20130627
  Serious: Yes (Other)
  Sender: FDA-Public Use
  Company Number: None

PATIENT
  Age: 65 Year
  Sex: Male
  Weight: 74.84 kg

DRUGS (1)
  1. ADVANCE WHITE BAKING SODA AND PEROXIDE TARTAR CONTROL [Suspect]
     Dosage: dollop 1 to 2 daily po
     Route: 048
     Dates: start: 20120501, end: 20120901

REACTIONS (4)
  - Lip swelling [None]
  - Skin exfoliation [None]
  - Oral discomfort [None]
  - Dry mouth [None]
